FAERS Safety Report 8464120-7 (Version None)
Quarter: 2012Q2

REPORT INFORMATION
  Report Type: 
  Country: None (occurrence: None)
  Receive Date: 20120625
  Receipt Date: 20120624
  Transmission Date: 20120825
  Serious: Yes (Hospitalization, Other)
  Sender: FDA-Public Use
  Company Number: JP-ABBOTT-12P-087-0909170-00

PATIENT
  Sex: Female
  Weight: 46.1 kg

DRUGS (11)
  1. ASPIRIN [Concomitant]
     Indication: LACUNAR INFARCTION
     Route: 048
  2. ZOLPIDEM TARTRATE [Concomitant]
     Indication: PRODUCT USED FOR UNKNOWN INDICATION
     Dosage: 5MG DAILY
     Dates: start: 20100409, end: 20100616
  3. CELECOXIB [Concomitant]
     Indication: RHEUMATOID ARTHRITIS
     Route: 048
  4. ISONIAZID [Concomitant]
     Indication: ANTIBIOTIC PROPHYLAXIS
     Route: 048
  5. CLARITHROMYCIN [Concomitant]
     Indication: BRONCHIOLITIS
     Route: 048
  6. TACROLIMUS [Concomitant]
     Indication: RHEUMATOID ARTHRITIS
     Route: 048
  7. METHYLPREDNISOLONE [Concomitant]
     Indication: RHEUMATOID ARTHRITIS
     Route: 048
  8. OMEPRAZOLE [Concomitant]
     Indication: ULCER
     Route: 048
  9. ALENDRONATE SODIUM [Concomitant]
     Indication: OSTEOPOROSIS
     Route: 048
  10. OMEPRAZOLE [Concomitant]
     Indication: PROPHYLAXIS
  11. HUMIRA [Suspect]
     Indication: RHEUMATOID ARTHRITIS
     Route: 058
     Dates: start: 20090805, end: 20100315

REACTIONS (9)
  - CARDIOMEGALY [None]
  - PCO2 INCREASED [None]
  - NAUSEA [None]
  - PRODUCTIVE COUGH [None]
  - RENAL FAILURE [None]
  - CARDIAC FAILURE [None]
  - MALAISE [None]
  - VOMITING [None]
  - CONSTIPATION [None]
